FAERS Safety Report 11115434 (Version 1)
Quarter: 2015Q2

REPORT INFORMATION
  Report Type: Report from Study
  Country: US (occurrence: None)
  Receive Date: 20150511
  Receipt Date: 20150511
  Transmission Date: 20150821
  Serious: Yes (Hospitalization, Other)
  Sender: FDA-Public Use
  Company Number: 2014FE02573

PATIENT
  Age: 55 Year
  Sex: Male

DRUGS (1)
  1. FIRMAGON [Suspect]
     Active Substance: DEGARELIX ACETATE
     Indication: PROSTATE CANCER
     Dates: start: 20140522, end: 20140522

REACTIONS (7)
  - Colitis [None]
  - Myalgia [None]
  - Brachial plexopathy [None]
  - Neuralgia [None]
  - Large intestine perforation [None]
  - Pain in extremity [None]
  - Muscular weakness [None]

NARRATIVE: CASE EVENT DATE: 20140811
